FAERS Safety Report 8504277-2 (Version None)
Quarter: 2012Q3

REPORT INFORMATION
  Report Type: 
  Country: None (occurrence: None)
  Receive Date: 20120711
  Receipt Date: 20120704
  Transmission Date: 20120928
  Serious: Yes (Other)
  Sender: FDA-Public Use
  Company Number: PHEH2012US011256

PATIENT
  Sex: Female

DRUGS (6)
  1. METHYLDOPA [Concomitant]
     Dosage: 500 MG, BID
  2. LISINOPRIL [Concomitant]
     Dosage: 10 MG, QD
  3. LOPRESSOR [Suspect]
     Dosage: UNK UKN, UNK
  4. METOPROLOL TARTRATE [Suspect]
     Dosage: UNK UKN, UNK
  5. NEXIUM [Concomitant]
     Dosage: 40 MG, QD
  6. LIPITOR [Concomitant]
     Dosage: 10 MG, QD

REACTIONS (1)
  - HYPERTENSION [None]
